FAERS Safety Report 19763616 (Version 1)
Quarter: 2021Q3

REPORT INFORMATION
  Report Type: Spontaneous
  Country: US (occurrence: US)
  Receive Date: 20210830
  Receipt Date: 20210830
  Transmission Date: 20211014
  Serious: Yes (Death, Other)
  Sender: FDA-Public Use
  Company Number: US-GLAXOSMITHKLINE-US2021GSK180750

PATIENT
  Sex: Male

DRUGS (7)
  1. RANITIDINE. [Suspect]
     Active Substance: RANITIDINE
     Indication: FLATULENCE
     Dosage: 150 MG, 3?4 TIME A WEEK
     Route: 065
     Dates: start: 201001, end: 202001
  2. ZANTAC [Suspect]
     Active Substance: RANITIDINE HYDROCHLORIDE
     Indication: FLATULENCE
     Dosage: 150 MG, 3?4 TIME A WEEK
     Route: 065
     Dates: start: 201001, end: 202001
  3. RANITIDINE. [Suspect]
     Active Substance: RANITIDINE
     Indication: FLATULENCE
     Dosage: 150 MG, 3?4 TIME A WEEK
     Route: 065
     Dates: start: 201001, end: 202001
  4. ZANTAC [Suspect]
     Active Substance: RANITIDINE HYDROCHLORIDE
     Indication: FLATULENCE
     Dosage: 150 MG, 3?4 TIME A WEEK
     Route: 065
     Dates: start: 201001, end: 202001
  5. ZANTAC [Suspect]
     Active Substance: RANITIDINE HYDROCHLORIDE
     Indication: FLATULENCE
     Dosage: 150 MG, 3?4 TIME A WEEK
     Route: 065
     Dates: start: 201001, end: 202001
  6. RANITIDINE. [Suspect]
     Active Substance: RANITIDINE
     Indication: FLATULENCE
     Dosage: 150 MG, 3?4 TIME A WEEK
     Route: 065
     Dates: start: 201001, end: 202001
  7. RANITIDINE CAPSULE [Suspect]
     Active Substance: RANITIDINE
     Indication: FLATULENCE
     Dosage: 150 MG, 3?4 TIME A WEEK
     Route: 065
     Dates: start: 201001, end: 202001

REACTIONS (1)
  - Pancreatic carcinoma [Fatal]
